FAERS Safety Report 18442617 (Version 12)
Quarter: 2022Q2

REPORT INFORMATION
  Report Type: Spontaneous
  Country: PL (occurrence: PL)
  Receive Date: 20201029
  Receipt Date: 20220413
  Transmission Date: 20220721
  Serious: Yes (Hospitalization, Disabling, Other)
  Sender: FDA-Public Use
  Company Number: None

PATIENT
  Age: 32 Year
  Sex: Female

DRUGS (9)
  1. OMEPRAZOLE [Interacting]
     Active Substance: OMEPRAZOLE
     Indication: Dyspepsia
     Dosage: 40 MG, QD
     Route: 065
  2. SERTRALINE [Interacting]
     Active Substance: SERTRALINE HYDROCHLORIDE
     Indication: Depression
     Dosage: 50 MG, QD (IN THE MORNING, INCREASED TO 100 MG/DAY)
     Route: 048
  3. SERTRALINE [Interacting]
     Active Substance: SERTRALINE HYDROCHLORIDE
     Dosage: 100 MG, QD (DOSE INCREASED)
     Route: 048
  4. HYDROXYZINE [Interacting]
     Active Substance: HYDROXYZINE HYDROCHLORIDE
     Indication: Dyspepsia
     Dosage: 25 MG, TID
     Route: 065
  5. HYDROXYZINE [Interacting]
     Active Substance: HYDROXYZINE HYDROCHLORIDE
     Indication: Depressed mood
  6. HYDROXYZINE [Interacting]
     Active Substance: HYDROXYZINE HYDROCHLORIDE
     Indication: Depression
  7. ITOPRIDE [Interacting]
     Active Substance: ITOPRIDE
     Indication: Dyspepsia
     Dosage: 50 MG, BID
     Route: 048
  8. ITOPRIDE [Interacting]
     Active Substance: ITOPRIDE
     Dosage: 50 MG, TID
     Route: 048
  9. ITOPRIDE [Interacting]
     Active Substance: ITOPRIDE
     Dosage: 50 MG, QD (IN THE MORNING)
     Route: 048

REACTIONS (13)
  - Headache [Recovering/Resolving]
  - Paraesthesia [Recovered/Resolved]
  - Drug interaction [Unknown]
  - Asthenia [Unknown]
  - Somnolence [Recovering/Resolving]
  - Constipation [Recovered/Resolved]
  - Nausea [Recovered/Resolved]
  - Dyspepsia [Recovered/Resolved]
  - Gastric disorder [Recovering/Resolving]
  - Depression [Unknown]
  - Therapeutic product effect incomplete [Unknown]
  - Decreased immune responsiveness [Unknown]
  - Hypersomnia [Unknown]
